FAERS Safety Report 7415726-5 (Version None)
Quarter: 2011Q2

REPORT INFORMATION
  Report Type: 
  Country: None (occurrence: None)
  Receive Date: 20110414
  Receipt Date: 20101008
  Transmission Date: 20111010
  Serious: No
  Sender: FDA-Public Use
  Company Number: US-BRISTOL-MYERS SQUIBB COMPANY-15325483

PATIENT
  Age: 65 Year
  Sex: Male
  Weight: 73 kg

DRUGS (2)
  1. HYDREA [Suspect]
  2. IBUPROFEN [Concomitant]

REACTIONS (2)
  - NAIL DISORDER [None]
  - SKIN DISCOLOURATION [None]
